FAERS Safety Report 23570580 (Version 1)
Quarter: 2024Q1

REPORT INFORMATION
  Report Type: Spontaneous
  Country: FR (occurrence: FR)
  Receive Date: 20240227
  Receipt Date: 20240227
  Transmission Date: 20240409
  Serious: Yes (Hospitalization)
  Sender: FDA-Public Use
  Company Number: None

PATIENT
  Age: 1 Year
  Sex: Female
  Weight: 9.35 kg

DRUGS (9)
  1. ETOPOSIDE [Suspect]
     Active Substance: ETOPOSIDE
     Indication: Germ cell cancer metastatic
     Dosage: 118.75 MILLIGRAM, QD (IV, EVERY DAY FOR 5 DAYS)
     Route: 042
     Dates: start: 20240122, end: 20240126
  2. CISPLATIN [Suspect]
     Active Substance: CISPLATIN
     Indication: Germ cell cancer metastatic
     Dosage: 31 MILLIGRAM, QD (EVERY DAY FOR 5 DAYS)
     Route: 042
     Dates: start: 20240122, end: 20240126
  3. IFOSFAMIDE [Suspect]
     Active Substance: IFOSFAMIDE
     Indication: Germ cell cancer metastatic
     Dosage: 1900 MILLIGRAM, QD (EVERY DAY, FOR 2 DAYS)
     Route: 042
     Dates: start: 20240122, end: 20240123
  4. LENOGRASTIM [Concomitant]
     Active Substance: LENOGRASTIM
     Indication: Neutropenia
     Dosage: 0.5 MILLILITER, QD (PER DAY)
     Route: 058
     Dates: start: 20240128
  5. ONDANSETRON [Concomitant]
     Active Substance: ONDANSETRON
     Indication: Nausea
     Dosage: 4 MILLIGRAM, BID (EVERY 12 HOURS)
     Route: 042
     Dates: start: 20240122
  6. ALIZAPRIDE HYDROCHLORIDE [Concomitant]
     Active Substance: ALIZAPRIDE HYDROCHLORIDE
     Indication: Nausea
     Dosage: 30 MILLIGRAM, QD (CONTINUOUSLY OVER 24 HOURS IV)
     Route: 042
     Dates: start: 20240122, end: 20240130
  7. BACTRIM [Concomitant]
     Active Substance: SULFAMETHOXAZOLE\TRIMETHOPRIM
     Indication: Chemotherapy side effect prophylaxis
     Dosage: 200 MILLIGRAM, QOD (EVERY MONDAY, WEDNESDAY AND FRIDAY)
     Route: 048
     Dates: start: 20240129
  8. MORPHINE HYDROCHLORIDE [Concomitant]
     Active Substance: MORPHINE HYDROCHLORIDE
     Indication: Pain
     Dosage: 0.2 MILLIGRAM, QH (0.2 MG/HOUR BASAL)
     Route: 048
     Dates: start: 20240125, end: 20240130
  9. ACETAMINOPHEN [Concomitant]
     Active Substance: ACETAMINOPHEN
     Indication: Pain
     Dosage: 150 MILLIGRAM (4 DOSES MAX PER DAY, IF PAIN)
     Route: 048
     Dates: start: 20240128

REACTIONS (1)
  - Encephalopathy [Recovered/Resolved]

NARRATIVE: CASE EVENT DATE: 20240130
